FAERS Safety Report 5098236-2 (Version None)
Quarter: 2006Q3

REPORT INFORMATION
  Report Type: 
  Country: None (occurrence: None)
  Receive Date: 20060906
  Receipt Date: 20060608
  Transmission Date: 20061208
  Serious: No
  Sender: FDA-Public Use
  Company Number: US-GLAXOSMITHKLINE-A0608364A

PATIENT
  Sex: Male

DRUGS (5)
  1. REQUIP [Suspect]
     Indication: RESTLESS LEGS SYNDROME
     Dosage: 1MG PER DAY
     Route: 048
  2. AMBIEN [Concomitant]
  3. VASOTEC [Concomitant]
  4. PROZAC [Concomitant]
  5. FERROUS GLUCONATE [Concomitant]

REACTIONS (2)
  - BLOOD IRON [None]
  - DRUG INEFFECTIVE [None]
